FAERS Safety Report 7087174-1 (Version None)
Quarter: 2010Q4

REPORT INFORMATION
  Report Type: 
  Country: None (occurrence: None)
  Receive Date: 20101106
  Receipt Date: 20101028
  Transmission Date: 20110411
  Serious: Yes (Other)
  Sender: FDA-Public Use
  Company Number: US-WYE-H18485410

PATIENT
  Sex: Male

DRUGS (2)
  1. EFFEXOR [Suspect]
  2. EFFEXOR [Suspect]
     Dosage: TRIED TO WEAN OFF

REACTIONS (1)
  - DRUG WITHDRAWAL SYNDROME [None]
